FAERS Safety Report 8324973 (Version 4)
Quarter: 2014Q1

REPORT INFORMATION
  Report Type: Spontaneous
  Country: US (occurrence: US)
  Receive Date: 20120106
  Receipt Date: 20140131
  Transmission Date: 20141002
  Serious: Yes (Other)
  Sender: FDA-Public Use
  Company Number: US-BAYER-2012-000132

PATIENT
  Sex: Female

DRUGS (10)
  1. YAZ [Suspect]
     Dosage: UNK
     Dates: start: 2008, end: 200903
  2. YASMIN [Suspect]
     Dosage: UNK
     Dates: start: 200402, end: 2008
  3. PREMPRO [Concomitant]
     Dosage: UNK
     Dates: start: 2009
  4. PREDNISONE [Concomitant]
  5. SKELAXIN [Concomitant]
  6. VITAMIN D [Concomitant]
  7. MECLIZINE [Concomitant]
  8. CALTRATE [CALCIUM CARBONATE] [Concomitant]
  9. LORTAB [Concomitant]
  10. LISINOPRIL [Concomitant]

REACTIONS (4)
  - Cholecystitis acute [None]
  - Gallbladder disorder [None]
  - Pain [None]
  - Depression [None]
